FAERS Safety Report 15283798 (Version 1)
Quarter: 2018Q3

REPORT INFORMATION
  Report Type: Spontaneous
  Country: US (occurrence: US)
  Receive Date: 20180816
  Receipt Date: 20180816
  Transmission Date: 20181010
  Serious: Yes (Hospitalization, Other)
  Sender: FDA-Public Use
  Company Number: US-APOTEX-2018AP019230

PATIENT
  Age: 36 Year
  Sex: Male

DRUGS (1)
  1. LITHIUM CARBONATE. [Suspect]
     Active Substance: LITHIUM CARBONATE
     Indication: BIPOLAR DISORDER
     Dosage: UNK
     Route: 065

REACTIONS (11)
  - Hyperthermia [Unknown]
  - Blood calcium increased [Recovered/Resolved]
  - Toxicity to various agents [Unknown]
  - Mental status changes [Recovered/Resolved]
  - Blood sodium increased [Unknown]
  - Unresponsive to stimuli [Unknown]
  - Antipsychotic drug level increased [Recovered/Resolved]
  - Hyperparathyroidism [Recovered/Resolved]
  - Nephrogenic diabetes insipidus [Recovered/Resolved]
  - Acute kidney injury [Unknown]
  - Blood creatinine increased [Recovered/Resolved]
